FAERS Safety Report 5883723-7 (Version None)
Quarter: 2008Q3

REPORT INFORMATION
  Report Type: 
  Country: None (occurrence: None)
  Receive Date: 20080911
  Receipt Date: 20080905
  Transmission Date: 20090109
  Serious: No
  Sender: FDA-Public Use
  Company Number: 08H-163-0314856-00

PATIENT
  Age: 58 Year
  Sex: Male

DRUGS (2)
  1. HEPARIN SODIUM INJECTION [Suspect]
     Indication: DRUG USE FOR UNKNOWN INDICATION
     Dosage: 100 ML/HOUR, CONTINOUS, INTRAVENOUS DRIP
     Route: 041
     Dates: start: 20080815
  2. ANTIBIOTICS (ANTIBIOTICS) [Concomitant]

REACTIONS (1)
  - INCORRECT DRUG ADMINISTRATION RATE [None]
